FAERS Safety Report 5013824-7 (Version None)
Quarter: 2006Q2

REPORT INFORMATION
  Report Type: 
  Country: None (occurrence: None)
  Receive Date: 20060526
  Receipt Date: 20060526
  Transmission Date: 20061013
  Serious: Yes (Life-Threatening, Disabling)
  Sender: FDA-Public Use
  Company Number: None

PATIENT
  Age: 1 Year
  Sex: Male
  Weight: 7.2576 kg

DRUGS (3)
  1. CYTOTEC [Suspect]
     Indication: CERVIX DISORDER
     Dosage: 100 MCG   1 DOSE   ORALLY   (2/21/06- 1 DOSE @ 7- 8 PM)  (2/22/06- 1 DOSE @ 1 AM)
     Route: 048
     Dates: start: 20060221
  2. CYTOTEC [Suspect]
     Indication: CERVIX DISORDER
     Dosage: 100 MCG   1 DOSE   ORALLY   (2/21/06- 1 DOSE @ 7- 8 PM)  (2/22/06- 1 DOSE @ 1 AM)
     Route: 048
     Dates: start: 20060222
  3. PHENOBARBITAL [Concomitant]

REACTIONS (10)
  - CEREBRAL HAEMORRHAGE NEONATAL [None]
  - CEREBRAL THROMBOSIS [None]
  - CEREBROVASCULAR ACCIDENT [None]
  - CONVULSION [None]
  - DRUG EXPOSURE DURING PREGNANCY [None]
  - GAZE PALSY [None]
  - HEART RATE INCREASED [None]
  - HEMIPARESIS [None]
  - NEONATAL DISORDER [None]
  - POSTURE ABNORMAL [None]
